FAERS Safety Report 10424278 (Version 1)
Quarter: 2014Q3

REPORT INFORMATION
  Report Type: Spontaneous
  Country: DE (occurrence: DE)
  Receive Date: 20140902
  Receipt Date: 20140902
  Transmission Date: 20150326
  Serious: Yes (Life-Threatening, Other)
  Sender: FDA-Public Use
  Company Number: PHHY2014DE108513

PATIENT
  Age: 17 Year
  Sex: Female

DRUGS (5)
  1. CLOZAPINE. [Suspect]
     Active Substance: CLOZAPINE
     Indication: HUNTINGTON^S DISEASE
     Dosage: UNK UKN, UNK
  2. VENLAFAXIN [Concomitant]
     Active Substance: VENLAFAXINE HYDROCHLORIDE
     Dosage: UNK UKN, UNK
  3. SILOMAT [Suspect]
     Active Substance: CLOBUTINOL
     Dosage: UNK UKN, UNK
     Dates: start: 20140410
  4. RISPERIDONE. [Concomitant]
     Active Substance: RISPERIDONE
     Indication: HALLUCINATION
     Dosage: UNK UKN, UNK (LOW DOSAGE)
  5. CLOZAPINE. [Suspect]
     Active Substance: CLOZAPINE
     Indication: OFF LABEL USE
     Dosage: 0.5 DF, QD (25 MG)

REACTIONS (3)
  - Off label use [None]
  - Hallucination [Recovered/Resolved]
  - Suicide attempt [Recovered/Resolved]
